FAERS Safety Report 4687869-0 (Version None)
Quarter: 2005Q2

REPORT INFORMATION
  Report Type: 
  Country: None (occurrence: None)
  Receive Date: 20050608
  Receipt Date: 20050608
  Transmission Date: 20051028
  Serious: Yes (Other)
  Sender: FDA-Public Use
  Company Number: None

PATIENT
  Sex: Male
  Weight: 78.4 kg

DRUGS (2)
  1. ETOPOSIDE [Suspect]
     Indication: SMALL CELL LUNG CANCER STAGE UNSPECIFIED
     Dosage: 100 MG/M2 IV OVER 30-60 MIN ON DAYS 1, 2, + 3 Q 3 WKS.
     Route: 042
     Dates: start: 20050503
  2. CISPLATIN [Suspect]
     Indication: SMALL CELL LUNG CANCER STAGE UNSPECIFIED
     Dosage: 80 MG/M2 IV OVER 30-60 MIN ON DAY 1 Q 3 WKS.
     Route: 042

REACTIONS (1)
  - MENTAL STATUS CHANGES [None]
